FAERS Safety Report 23209818 (Version 1)
Quarter: 2023Q4

REPORT INFORMATION
  Report Type: Spontaneous
  Country: GB (occurrence: GB)
  Receive Date: 20231121
  Receipt Date: 20231121
  Transmission Date: 20240109
  Serious: Yes (Other)
  Sender: FDA-Public Use
  Company Number: GB-MHRA-MED-202311101259412860-WFDKR

PATIENT
  Age: 52 Year
  Sex: Male

DRUGS (1)
  1. ATOMOXETINE HYDROCHLORIDE [Suspect]
     Active Substance: ATOMOXETINE HYDROCHLORIDE
     Indication: Adverse drug reaction
     Dosage: 40 MILLIGRAM, ONCE A DAY
     Route: 065
     Dates: start: 20231021, end: 20231030

REACTIONS (2)
  - Urinary tract disorder [Recovered/Resolved]
  - Renal pain [Recovered/Resolved]

NARRATIVE: CASE EVENT DATE: 20231021
